FAERS Safety Report 5717681-2 (Version None)
Quarter: 2008Q2

REPORT INFORMATION
  Report Type: 
  Country: None (occurrence: None)
  Receive Date: 20080425
  Receipt Date: 20080415
  Transmission Date: 20081010
  Serious: Yes (Other)
  Sender: FDA-Public Use
  Company Number: ES-ROCHE-558790

PATIENT
  Age: 75 Year
  Sex: Female

DRUGS (5)
  1. BONIVA [Suspect]
     Indication: OSTEOPOROSIS
     Dosage: FORM: FILM COATED TABLET
     Route: 048
     Dates: start: 20080302, end: 20080302
  2. SIMVASTATIN [Concomitant]
  3. NEXIUM [Concomitant]
     Dosage: FORM: GASTRORESISTANT TABLET
     Dates: end: 20060721
  4. IDEOS [Concomitant]
  5. IDEOS [Concomitant]

REACTIONS (2)
  - BACK INJURY [None]
  - SYNCOPE [None]
